FAERS Safety Report 4704981-8 (Version None)
Quarter: 2005Q2

REPORT INFORMATION
  Report Type: 
  Country: None (occurrence: None)
  Receive Date: 20050629
  Receipt Date: 20050629
  Transmission Date: 20051028
  Serious: No
  Sender: FDA-Public Use
  Company Number: None

PATIENT
  Sex: Male
  Weight: 108.8633 kg

DRUGS (3)
  1. CELEBREX [Suspect]
     Indication: ARTHRALGIA
     Dosage: 2 CAPSULES BY MOUTH DAILY [2-3 YEARS]
  2. CELEBREX [Suspect]
     Indication: ARTHRITIS
     Dosage: 2 CAPSULES BY MOUTH DAILY [2-3 YEARS]
  3. BENICAR [Concomitant]

REACTIONS (4)
  - CEREBROVASCULAR ACCIDENT [None]
  - HEADACHE [None]
  - SINUSITIS [None]
  - VISUAL ACUITY REDUCED [None]
